FAERS Safety Report 8234295-3 (Version None)
Quarter: 2012Q1

REPORT INFORMATION
  Report Type: 
  Country: None (occurrence: None)
  Receive Date: 20120326
  Receipt Date: 20120320
  Transmission Date: 20120608
  Serious: Yes (Death)
  Sender: FDA-Public Use
  Company Number: US-ROCHE-1035750

PATIENT
  Sex: Female

DRUGS (2)
  1. XELODA [Suspect]
     Route: 048
     Dates: start: 20120126, end: 20120201
  2. XELODA [Suspect]
     Indication: BREAST CANCER METASTATIC
     Route: 048
     Dates: start: 20120106

REACTIONS (2)
  - DEATH [None]
  - DIARRHOEA [None]
